FAERS Safety Report 7812708-6 (Version None)
Quarter: 2011Q4

REPORT INFORMATION
  Report Type: 
  Country: None (occurrence: None)
  Receive Date: 20111013
  Receipt Date: 20110930
  Transmission Date: 20120403
  Serious: Yes (Hospitalization, Other)
  Sender: FDA-Public Use
  Company Number: CA-ELI_LILLY_AND_COMPANY-CA201109008703

PATIENT
  Sex: Male

DRUGS (2)
  1. ZYPREXA [Suspect]
     Indication: BIPOLAR DISORDER
     Dosage: 2.5 MG, QD
     Dates: start: 20061114, end: 20070430
  2. ZYPREXA [Suspect]
     Dosage: 10 MG, QD

REACTIONS (9)
  - DIABETES INSIPIDUS [None]
  - FATIGUE [None]
  - BLOOD SODIUM INCREASED [None]
  - RENAL IMPAIRMENT [None]
  - HYPERSENSITIVITY [None]
  - GAIT DISTURBANCE [None]
  - HICCUPS [None]
  - SPEECH DISORDER [None]
  - RASH [None]
